FAERS Safety Report 5813523-5 (Version None)
Quarter: 2008Q3

REPORT INFORMATION
  Report Type: 
  Country: None (occurrence: None)
  Receive Date: 20080711
  Receipt Date: 20080702
  Transmission Date: 20090109
  Serious: Yes (Other)
  Sender: FDA-Public Use
  Company Number: GXKR2008US06121

PATIENT
  Age: 70 Year
  Sex: Male

DRUGS (3)
  1. PREDNISONE [Suspect]
     Indication: IMMUNOSUPPRESSION
     Dosage: 5 MG, QD, ORAL
     Route: 048
  2. MYCOPHENOLATE MOFETIL [Suspect]
     Indication: IMMUNOSUPPRESSION
     Dosage: 500 MG, QD, ORAL
     Route: 048
  3. TACROLIMUS [Suspect]
     Indication: IMMUNOSUPPRESSION
     Dosage: 0.5 MG, QD, ORAL
     Route: 048

REACTIONS (14)
  - BLISTER [None]
  - DIFFUSE LARGE B-CELL LYMPHOMA [None]
  - FATIGUE [None]
  - HAEMATOMA [None]
  - HEPATIC LESION [None]
  - LEUKOPENIA [None]
  - LUNG NEOPLASM [None]
  - LYMPHADENOPATHY [None]
  - MEDICAL DEVICE COMPLICATION [None]
  - METASTASIS [None]
  - PELVIC NEOPLASM [None]
  - SKIN NODULE [None]
  - STAPHYLOCOCCAL IDENTIFICATION TEST POSITIVE [None]
  - SWELLING [None]
